FAERS Safety Report 11444932 (Version 3)
Quarter: 2015Q4

REPORT INFORMATION
  Report Type: Spontaneous
  Country: JP (occurrence: JP)
  Receive Date: 20150902
  Receipt Date: 20151127
  Transmission Date: 20160304
  Serious: Yes (Hospitalization)
  Sender: FDA-Public Use
  Company Number: PHJP2015JP010190

PATIENT
  Age: 1 Month
  Sex: Female
  Weight: 1.64 kg

DRUGS (14)
  1. GAMOFA [Concomitant]
     Active Substance: FAMOTIDINE
     Indication: GASTRIC HAEMORRHAGE
     Dosage: 2 MG, QD
     Route: 042
     Dates: start: 20120403, end: 20120404
  2. KAYTWO N [Concomitant]
     Active Substance: MENATETRENONE
     Indication: VITAMIN K DEFICIENCY
     Dosage: 1 MG, QD
     Route: 042
     Dates: start: 20120404, end: 20120404
  3. EPOETIN ALFA [Concomitant]
     Active Substance: ERYTHROPOIETIN
     Indication: ANAEMIA NEONATAL
     Dosage: 1500 IU, QD
     Route: 058
     Dates: start: 20120501, end: 20120508
  4. SOLU-CORTEF [Concomitant]
     Active Substance: HYDROCORTISONE SODIUM SUCCINATE
     Indication: CIRCULATORY COLLAPSE
     Dosage: 4 MG, QD
     Route: 042
     Dates: start: 20120402, end: 20120403
  5. VENILON [Concomitant]
     Active Substance: HUMAN IMMUNOGLOBULIN G
     Indication: HYPOGAMMAGLOBULINAEMIA
     Dosage: 500 MG, UNK
     Route: 042
     Dates: start: 20120404, end: 20120425
  6. NEOLAMIN MULTI [Concomitant]
     Indication: NUTRITIONAL SUPPLEMENTATION
     Route: 042
     Dates: start: 20120405, end: 20120418
  7. URSODEOXYCHOLIC ACID [Concomitant]
     Active Substance: URSODIOL
     Indication: CHYLOTHORAX
     Dosage: UNK, QD
     Route: 065
     Dates: start: 20120514, end: 20120618
  8. ALFAROL [Concomitant]
     Active Substance: ALFACALCIDOL
     Indication: RICKETS
     Dosage: 0.08 UG, QD
     Route: 065
     Dates: start: 20120321, end: 20120416
  9. BUMINATE [Concomitant]
     Active Substance: ALBUMIN (HUMAN)
     Indication: HYPOALBUMINAEMIA
     Dosage: 45 ML, QD
     Route: 042
     Dates: start: 20120321, end: 20120331
  10. PLEAMIN P [Concomitant]
     Indication: PRODUCT USED FOR UNKNOWN INDICATION
     Route: 065
     Dates: start: 20120405, end: 20120418
  11. MEDLENIK [Concomitant]
     Active Substance: CUPRIC SULFATE\FERRIC CHLORIDE\MANGANESE CHLORIDE\POTASSIUM IODIDE\ZINC SULFATE
     Indication: PRODUCT USED FOR UNKNOWN INDICATION
     Route: 065
     Dates: start: 20120411, end: 20120418
  12. INCREMIN [Concomitant]
     Active Substance: FERRIC PYROPHOSPHATE
     Indication: ANAEMIA
     Route: 065
     Dates: start: 20120423, end: 20120521
  13. SANDOSTATIN [Suspect]
     Active Substance: OCTREOTIDE ACETATE
     Indication: CHYLOTHORAX
     Dosage: 0.8-60 UG, UNK
     Route: 058
     Dates: start: 20120326, end: 20120506
  14. PANVITAN [Concomitant]
     Indication: PRODUCT USED FOR UNKNOWN INDICATION
     Route: 048
     Dates: start: 20120420, end: 20121128

REACTIONS (5)
  - Eosinophil count increased [Recovering/Resolving]
  - Faeces pale [Unknown]
  - Liver disorder [Recovering/Resolving]
  - Jaundice cholestatic [Recovering/Resolving]
  - Product use issue [Unknown]

NARRATIVE: CASE EVENT DATE: 20120416
